FAERS Safety Report 15105365 (Version 2)
Quarter: 2018Q3

REPORT INFORMATION
  Report Type: Other
  Country: JP (occurrence: JP)
  Receive Date: 20180704
  Receipt Date: 20180803
  Transmission Date: 20181010
  Serious: Yes (Other)
  Sender: FDA-Public Use
  Company Number: JP-ACTELION-A-CH2018-174346

PATIENT
  Age: 31 Year
  Sex: Female

DRUGS (12)
  1. PREDNISOLONE. [Concomitant]
     Active Substance: PREDNISOLONE
     Indication: SYSTEMIC LUPUS ERYTHEMATOSUS
     Dosage: 25 MG, QD
  2. PREDNISOLONE. [Concomitant]
     Active Substance: PREDNISOLONE
     Dosage: 36 MG, QD
  3. NITRIC OXIDE. [Concomitant]
     Active Substance: NITRIC OXIDE
     Dosage: 20 PPM, UNK
  4. CYCLOPHOSPHAMIDE. [Concomitant]
     Active Substance: CYCLOPHOSPHAMIDE
     Route: 048
  5. MIZORIBINE [Concomitant]
     Active Substance: MIZORIBINE
     Dosage: 150 MG, UNK
  6. CYCLOPHOSPHAMIDE. [Concomitant]
     Active Substance: CYCLOPHOSPHAMIDE
     Dosage: 40 MG, QD
  7. PREDNISOLONE. [Concomitant]
     Active Substance: PREDNISOLONE
     Dosage: 60 MG, UNK
  8. CYCLOPHOSPHAMIDE. [Concomitant]
     Active Substance: CYCLOPHOSPHAMIDE
     Dosage: 15 MG/KG, Q2WEEK
     Route: 042
  9. BOSENTAN. [Suspect]
     Active Substance: BOSENTAN
     Indication: PULMONARY ARTERIAL HYPERTENSION
     Dosage: 250 MG, QD
     Route: 048
  10. FLOLAN [Suspect]
     Active Substance: EPOPROSTENOL SODIUM
     Indication: PULMONARY ARTERIAL HYPERTENSION
     Dosage: 2.5 NG/KG, PER MIN
     Route: 042
  11. FLOLAN [Suspect]
     Active Substance: EPOPROSTENOL SODIUM
     Dosage: UNK
     Route: 042
  12. SILDENAFIL. [Concomitant]
     Active Substance: SILDENAFIL
     Dosage: 60 MG, QD

REACTIONS (19)
  - Caesarean section [Unknown]
  - Haemolytic anaemia [Unknown]
  - Platelet count decreased [Unknown]
  - Pulmonary arterial hypertension [Unknown]
  - Premature baby [Unknown]
  - Haematuria [Unknown]
  - Blood pressure decreased [Unknown]
  - Palmar erythema [Unknown]
  - Mouth ulceration [Unknown]
  - Dyspnoea [Unknown]
  - N-terminal prohormone brain natriuretic peptide increased [Unknown]
  - Inflammation [Unknown]
  - Microcytic anaemia [Unknown]
  - Exposure during pregnancy [Unknown]
  - Systemic lupus erythematosus [Unknown]
  - Condition aggravated [Unknown]
  - Erythema [Unknown]
  - Leukopenia [Unknown]
  - Butterfly rash [Unknown]
